FAERS Safety Report 8230065-0 (Version None)
Quarter: 2012Q1

REPORT INFORMATION
  Report Type: 
  Country: None (occurrence: None)
  Receive Date: 20120323
  Receipt Date: 20120320
  Transmission Date: 20120608
  Serious: Yes (Other)
  Sender: FDA-Public Use
  Company Number: US-PFIZER INC-2012072980

PATIENT
  Sex: Female
  Weight: 61.224 kg

DRUGS (2)
  1. EFFEXOR [Suspect]
     Indication: DEPRESSION
     Dosage: 150 MG, DAILY
  2. PLAVIX [Concomitant]
     Indication: HYPERTENSION
     Dosage: 75 MG, DAILY

REACTIONS (1)
  - CEREBROVASCULAR ACCIDENT [None]
